FAERS Safety Report 7257312-6 (Version None)
Quarter: 2011Q1

REPORT INFORMATION
  Report Type: 
  Country: None (occurrence: None)
  Receive Date: 20110129
  Receipt Date: 20100707
  Transmission Date: 20110831
  Serious: No
  Sender: FDA-Public Use
  Company Number: US-ABBOTT-10P-163-0655762-00

PATIENT
  Sex: Female

DRUGS (3)
  1. PAXIL [Concomitant]
     Indication: PRODUCT USED FOR UNKNOWN INDICATION
     Route: 048
     Dates: start: 20090903
  2. HUMIRA [Suspect]
     Indication: PSORIASIS
     Route: 058
     Dates: start: 20090221, end: 20100625
  3. HUMIRA [Suspect]
     Route: 058
     Dates: start: 20100701

REACTIONS (5)
  - INCREASED TENDENCY TO BRUISE [None]
  - PSORIASIS [None]
  - INSOMNIA [None]
  - DYSPNOEA [None]
  - HYPOAESTHESIA [None]
